FAERS Safety Report 9148645 (Version 1)
Quarter: 2013Q1

REPORT INFORMATION
  Report Type: Spontaneous
  Country: US (occurrence: US)
  Receive Date: 20130308
  Receipt Date: 20130308
  Transmission Date: 20140127
  Serious: No
  Sender: FDA-Public Use
  Company Number: US-ENDO PHARMACEUTICALS INC.-OPCR20121953

PATIENT
  Sex: Female

DRUGS (2)
  1. OPANA ER 20MG [Suspect]
     Indication: PAIN
     Dosage: 20MG
     Route: 048
     Dates: start: 20121002, end: 201210
  2. OPANA ER 20MG [Concomitant]
     Indication: PAIN
     Dosage: 20MG
     Route: 048
     Dates: start: 201209, end: 201209

REACTIONS (4)
  - Urinary hesitation [Unknown]
  - Withdrawal syndrome [Recovering/Resolving]
  - Drug screen negative [Unknown]
  - Drug ineffective [Recovered/Resolved]
